FAERS Safety Report 8487123-5 (Version None)
Quarter: 2012Q3

REPORT INFORMATION
  Report Type: 
  Country: None (occurrence: None)
  Receive Date: 20120704
  Receipt Date: 20120702
  Transmission Date: 20120928
  Serious: Yes (Other)
  Sender: FDA-Public Use
  Company Number: PHHY2012NL056837

PATIENT
  Sex: Male

DRUGS (3)
  1. ZOMETA [Suspect]
     Indication: PROSTATE CANCER METASTATIC
     Dosage: 4 MG/100ML 1X PER 28 DAYS
     Route: 042
     Dates: start: 20091112, end: 20110101
  2. ZOMETA [Suspect]
     Dosage: 4 MG/100ML 1X PER 28 DAYS
     Route: 042
     Dates: start: 20120614
  3. ZOMETA [Suspect]
     Dosage: 4 MG/100ML 1X PER 28 DAYS
     Route: 042
     Dates: start: 20111001

REACTIONS (2)
  - PAIN IN JAW [None]
  - JAW DISORDER [None]
